FAERS Safety Report 24890956 (Version 1)
Quarter: 2025Q1

REPORT INFORMATION
  Report Type: Spontaneous
  Country: AT (occurrence: AT)
  Receive Date: 20250127
  Receipt Date: 20250127
  Transmission Date: 20250408
  Serious: No
  Sender: ASTELLAS
  Company Number: AT-ASTELLAS-2025-AER-004510

PATIENT
  Age: 83 Year
  Sex: Male

DRUGS (1)
  1. VEOZAH [Suspect]
     Active Substance: FEZOLINETANT
     Indication: Hot flush
     Route: 050

REACTIONS (2)
  - Off label use [Unknown]
  - Intentional product use issue [Unknown]
